FAERS Safety Report 6479200-5 (Version None)
Quarter: 2009Q4

REPORT INFORMATION
  Report Type: 
  Country: None (occurrence: None)
  Receive Date: 20091207
  Receipt Date: 20090217
  Transmission Date: 20100525
  Serious: No
  Sender: FDA-Public Use
  Company Number: US-AMGEN-KDL334257

PATIENT
  Sex: Male

DRUGS (5)
  1. ENBREL [Suspect]
     Indication: RHEUMATOID ARTHRITIS
     Dates: start: 20080211
  2. METHOTREXATE [Concomitant]
  3. VIAGRA [Concomitant]
  4. CIALIS [Concomitant]
  5. LEVITRA [Concomitant]

REACTIONS (2)
  - RASH [None]
  - SKIN PAPILLOMA [None]
